FAERS Safety Report 15349346 (Version 3)
Quarter: 2019Q3

REPORT INFORMATION
  Report Type: Spontaneous
  Country: US (occurrence: US)
  Receive Date: 20180904
  Receipt Date: 20190731
  Transmission Date: 20191004
  Serious: Yes (Other)
  Sender: FDA-Public Use
  Company Number: US-SA-2018SA234723

PATIENT
  Age: 57 Year
  Sex: Female
  Weight: 127 kg

DRUGS (6)
  1. NEOSAR [Concomitant]
     Active Substance: CYCLOPHOSPHAMIDE
     Dosage: UNK
  2. TAXOTERE [Suspect]
     Active Substance: DOCETAXEL
     Indication: BREAST CANCER FEMALE
     Dosage: 178.5 MG, UNK
     Route: 042
     Dates: start: 20140306, end: 20140306
  3. TAXOTERE [Suspect]
     Active Substance: DOCETAXEL
     Dosage: 178.5 MG, QOW
     Route: 042
     Dates: start: 20140617, end: 20140617
  4. PREDNISONE. [Concomitant]
     Active Substance: PREDNISONE
     Dosage: UNK
     Dates: start: 1991
  5. FOLIC ACID. [Concomitant]
     Active Substance: FOLIC ACID
  6. CYTOXAN [Concomitant]
     Active Substance: CYCLOPHOSPHAMIDE
     Indication: BREAST CANCER
     Dosage: 1428 MG

REACTIONS (1)
  - Alopecia [Recovering/Resolving]

NARRATIVE: CASE EVENT DATE: 201403
